FAERS Safety Report 6418490-1 (Version None)
Quarter: 2009Q4

REPORT INFORMATION
  Report Type: 
  Country: None (occurrence: None)
  Receive Date: 20091026
  Receipt Date: 20091013
  Transmission Date: 20100525
  Serious: Yes (Hospitalization, Disabling)
  Sender: FDA-Public Use
  Company Number: ADR37392009

PATIENT
  Age: 93 Year
  Sex: Female

DRUGS (6)
  1. SIMVASTATIN [Suspect]
     Indication: HYPERLIPIDAEMIA
     Dosage: 20 MG, ORAL USE
     Route: 048
     Dates: start: 20040203, end: 20071001
  2. ADCAL-D3 [Concomitant]
  3. CLOPIDOGREL [Concomitant]
  4. CO-CODAMOL [Concomitant]
  5. LACTULOSE [Concomitant]
  6. OMEPRAZOLE [Concomitant]

REACTIONS (3)
  - ASTHENIA [None]
  - FATIGUE [None]
  - NEUROMYOPATHY [None]
